FAERS Safety Report 17802604 (Version 2)
Quarter: 2020Q2

REPORT INFORMATION
  Report Type: Spontaneous
  Country: GB (occurrence: GB)
  Receive Date: 20200519
  Receipt Date: 20200617
  Transmission Date: 20200714
  Serious: Yes (Disabling, Other)
  Sender: FDA-Public Use
  Company Number: GB-TORRENT-00023567

PATIENT
  Age: 74 Year
  Sex: Female

DRUGS (1)
  1. ARIPIPRAZOLE. [Suspect]
     Active Substance: ARIPIPRAZOLE
     Indication: EMOTIONAL DISTRESS
     Dates: start: 2014

REACTIONS (6)
  - Dizziness [Unknown]
  - Malaise [Unknown]
  - Antisocial behaviour [Recovered/Resolved]
  - Urine analysis abnormal [Recovered/Resolved]
  - Feeling drunk [Unknown]
  - Drug withdrawal convulsions [Unknown]
